FAERS Safety Report 24569662 (Version 1)
Quarter: 2024Q4

REPORT INFORMATION
  Report Type: Spontaneous
  Country: CN (occurrence: CN)
  Receive Date: 20241031
  Receipt Date: 20241031
  Transmission Date: 20250115
  Serious: Yes (Other)
  Sender: AMGEN
  Company Number: CN-AMGEN-CHNSP2024213402

PATIENT

DRUGS (8)
  1. REPATHA [Suspect]
     Active Substance: EVOLOCUMAB
     Indication: Acute myocardial infarction
     Dosage: UNK, Q2WK (15 DAYS)
     Route: 058
  2. LEVOCARNITINE [Concomitant]
     Active Substance: LEVOCARNITINE
     Dosage: 4 GRAM
  3. ASPIRIN [Concomitant]
     Active Substance: ASPIRIN
     Dosage: 6 TABLETS
     Route: 048
  4. ASPIRIN [Concomitant]
     Active Substance: ASPIRIN
     Dosage: 2 TABLETS PER DOSE, QD
     Route: 048
  5. TICAGRELOR [Concomitant]
     Active Substance: TICAGRELOR
     Dosage: 3 TABLETS
     Route: 048
  6. TICAGRELOR [Concomitant]
     Active Substance: TICAGRELOR
     Dosage: 2 TABLETS PER DOSE, BID
     Route: 048
  7. ATORVASTATIN CALCIUM [Concomitant]
     Active Substance: ATORVASTATIN CALCIUM
     Dosage: 1 TABLET PER DOSE, ONCE EVERY EVENING
  8. ISOSORBIDE MONONITRATE [Concomitant]
     Active Substance: ISOSORBIDE MONONITRATE
     Dosage: 1 TABLET PER DOSE, BID

REACTIONS (1)
  - Myocardial infarction [Unknown]
